FAERS Safety Report 19661460 (Version 3)
Quarter: 2022Q3

REPORT INFORMATION
  Report Type: Spontaneous
  Country: US (occurrence: US)
  Receive Date: 20210805
  Receipt Date: 20220724
  Transmission Date: 20221026
  Serious: No
  Sender: FDA-Public Use
  Company Number: US-ELI_LILLY_AND_COMPANY-US202108001260

PATIENT
  Sex: Female

DRUGS (1)
  1. ADCIRCA [Suspect]
     Active Substance: TADALAFIL
     Indication: Pulmonary arterial hypertension
     Dosage: 40 MG, DAILY
     Route: 048
     Dates: start: 20210423

REACTIONS (5)
  - Dysgeusia [Unknown]
  - Ageusia [Unknown]
  - Respiration abnormal [Unknown]
  - Headache [Unknown]
  - Hypersensitivity [Unknown]
